FAERS Safety Report 18193093 (Version 4)
Quarter: 2021Q2

REPORT INFORMATION
  Report Type: Spontaneous
  Country: US (occurrence: US)
  Receive Date: 20200825
  Receipt Date: 20210520
  Transmission Date: 20210717
  Serious: Yes (Hospitalization, Disabling, Other)
  Sender: FDA-Public Use
  Company Number: US-PFIZER INC-2020326949

PATIENT
  Age: 34 Year
  Sex: Male
  Weight: 97.07 kg

DRUGS (6)
  1. DILANTIN [Suspect]
     Active Substance: PHENYTOIN
     Dosage: 300 MG, DAILY
     Dates: start: 198109
  2. DILANTIN [Suspect]
     Active Substance: PHENYTOIN
     Indication: SEIZURE
     Dosage: UNK
     Dates: start: 1981
  3. DILANTIN [Suspect]
     Active Substance: PHENYTOIN
     Dosage: 30 MG, DAILY
     Dates: start: 199107
  4. DILANTIN [Suspect]
     Active Substance: PHENYTOIN
     Dosage: 100 MG
  5. DILANTIN [Suspect]
     Active Substance: PHENYTOIN
     Dosage: 330 MG, DAILY (200 MG IN THE MORNING, 130 MG AT NIGHT)
     Route: 048
  6. PHENOBARBITAL. [Concomitant]
     Active Substance: PHENOBARBITAL
     Dosage: UNK
     Dates: start: 198109

REACTIONS (4)
  - Haemorrhage [Not Recovered/Not Resolved]
  - Atrial fibrillation [Unknown]
  - Cerebral haemorrhage [Unknown]
  - Cerebrovascular accident [Not Recovered/Not Resolved]

NARRATIVE: CASE EVENT DATE: 1986
